FAERS Safety Report 19108127 (Version 1)
Quarter: 2021Q2

REPORT INFORMATION
  Report Type: Spontaneous
  Country: IT (occurrence: IT)
  Receive Date: 20210408
  Receipt Date: 20210408
  Transmission Date: 20210717
  Serious: Yes (Hospitalization, Other)
  Sender: FDA-Public Use
  Company Number: IT-BRISTOL-MYERS SQUIBB COMPANY-BMS-2021-032884

PATIENT
  Age: 34 Year
  Sex: Female

DRUGS (2)
  1. YAZ [DROSPIRENONE;ETHINYLESTRADIOL BETADEX] [Concomitant]
     Indication: ORAL CONTRACEPTION
     Dosage: 1 DOSAGE FORM, QD
     Route: 048
     Dates: start: 20190101, end: 20210116
  2. COUMADIN [Suspect]
     Active Substance: WARFARIN SODIUM
     Indication: THROMBOSIS
     Dosage: 1 DOSAGE FORM, AS NECESSARY
     Route: 048

REACTIONS (3)
  - Cerebral venous thrombosis [Recovering/Resolving]
  - Eyelid ptosis [Recovering/Resolving]
  - Periorbital pain [Recovering/Resolving]

NARRATIVE: CASE EVENT DATE: 20210116
